FAERS Safety Report 7586212-7 (Version None)
Quarter: 2011Q2

REPORT INFORMATION
  Report Type: 
  Country: None (occurrence: None)
  Receive Date: 20110630
  Receipt Date: 20110630
  Transmission Date: 20111010
  Serious: Yes (Hospitalization)
  Sender: FDA-Public Use
  Company Number: None

PATIENT
  Age: 67 Year
  Sex: Female
  Weight: 69.5 kg

DRUGS (1)
  1. ALENDRONATE SODIUM [Suspect]
     Indication: OSTEOPOROSIS
     Dosage: 1 TABLET (70 MG) PER WEEK BY MOUTH
     Route: 048
     Dates: start: 20100607

REACTIONS (6)
  - PAIN [None]
  - ABASIA [None]
  - MOVEMENT DISORDER [None]
  - MUSCLE DISORDER [None]
  - DRUG HYPERSENSITIVITY [None]
  - MOBILITY DECREASED [None]
